FAERS Safety Report 6231781-2 (Version None)
Quarter: 2009Q2

REPORT INFORMATION
  Report Type: 
  Country: None (occurrence: None)
  Receive Date: 20090616
  Receipt Date: 20090604
  Transmission Date: 20091009
  Serious: Yes (Other)
  Sender: FDA-Public Use
  Company Number: PHHY2009BR22002

PATIENT
  Sex: Female

DRUGS (7)
  1. DIOVAN HCT [Suspect]
     Indication: HYPERTENSION
     Dosage: 1 DF, QD
     Route: 048
  2. DIOVAN [Suspect]
     Indication: HYPERTENSION
     Dosage: 1 DF, QHS
     Route: 048
  3. DIOVAN [Suspect]
     Dosage: 80 MG/DAY
     Route: 048
     Dates: start: 20090605
  4. ANGIPRESS [Concomitant]
     Indication: HYPERTENSION
     Dosage: 50 MG, BID
     Route: 048
     Dates: start: 19990701
  5. VYTORIN [Concomitant]
     Indication: BLOOD CHOLESTEROL INCREASED
     Dosage: 1 TABLET (10/20 MG) IN THE NIGHT
     Route: 048
     Dates: start: 20040601
  6. SOMALGIN [Concomitant]
     Dosage: 100 MG DAILY
     Dates: start: 19990601
  7. ISORDIL [Concomitant]
     Indication: ANGINA PECTORIS
     Dosage: 1 TABLET (5 MG)
     Route: 060

REACTIONS (2)
  - BLOOD PRESSURE INCREASED [None]
  - HEART RATE IRREGULAR [None]
